FAERS Safety Report 16006103 (Version 1)
Quarter: 2019Q1

REPORT INFORMATION
  Report Type: Spontaneous
  Country: US (occurrence: US)
  Receive Date: 20190130
  Receipt Date: 20190130
  Transmission Date: 20190418
  Serious: Yes (Hospitalization)
  Sender: FDA-Public Use
  Company Number: None

PATIENT
  Age: 63 Year
  Sex: Female
  Weight: 62 kg

DRUGS (1)
  1. DEXAMETHASONE (34521) [Suspect]
     Active Substance: DEXAMETHASONE
     Dates: end: 20190117

REACTIONS (5)
  - Tachycardia [None]
  - Depressed level of consciousness [None]
  - Disease progression [None]
  - Pyrexia [None]
  - Urosepsis [None]

NARRATIVE: CASE EVENT DATE: 20190118
